FAERS Safety Report 15096237 (Version 2)
Quarter: 2018Q3

REPORT INFORMATION
  Report Type: Spontaneous
  Country: US (occurrence: US)
  Receive Date: 20180702
  Receipt Date: 20180713
  Transmission Date: 20181010
  Serious: No
  Sender: FDA-Public Use
  Company Number: US-PFIZER INC-2018261558

PATIENT
  Age: 81 Year
  Sex: Female
  Weight: 67 kg

DRUGS (5)
  1. XGEVA [Concomitant]
     Active Substance: DENOSUMAB
     Indication: BONE CANCER METASTATIC
     Dosage: 1 SHOT EVERY 3 MONTHS
     Dates: start: 201804
  2. LETROZOLE. [Concomitant]
     Active Substance: LETROZOLE
     Indication: BONE CANCER METASTATIC
     Dosage: 2.5 MG, 1X/DAY
     Dates: start: 201708
  3. IBRANCE [Suspect]
     Active Substance: PALBOCICLIB
     Indication: BREAST CANCER METASTATIC
     Dosage: 125 MG, CYCLIC (21 DAYS AND THEN 7 DAYS OFF)
     Route: 048
     Dates: start: 201709
  4. IBRANCE [Suspect]
     Active Substance: PALBOCICLIB
     Dosage: UNK
     Route: 048
     Dates: start: 201708
  5. ZOMETA [Concomitant]
     Active Substance: ZOLEDRONIC ACID
     Indication: BONE CANCER METASTATIC
     Dosage: UNK
     Dates: start: 201708, end: 201712

REACTIONS (2)
  - Nasopharyngitis [Recovered/Resolved]
  - Ear congestion [Recovering/Resolving]

NARRATIVE: CASE EVENT DATE: 201806
